FAERS Safety Report 15901463 (Version 1)
Quarter: 2019Q1

REPORT INFORMATION
  Report Type: Spontaneous
  Country: US (occurrence: US)
  Receive Date: 20190201
  Receipt Date: 20190201
  Transmission Date: 20190417
  Serious: Yes (Hospitalization)
  Sender: FDA-Public Use
  Company Number: None

PATIENT
  Age: 14 Month
  Sex: Female
  Weight: 9.45 kg

DRUGS (2)
  1. EQUATE IBUPROFEN CHILDRENS [Suspect]
     Active Substance: IBUPROFEN
     Indication: EAR INFECTION
     Dosage: ?          QUANTITY:1.25 1.25ML;?
     Route: 048
     Dates: start: 20181026, end: 20181029
  2. EQUATE IBUPROFEN CHILDRENS [Suspect]
     Active Substance: IBUPROFEN
     Indication: EAR PAIN
     Dosage: ?          QUANTITY:1.25 1.25ML;?
     Route: 048
     Dates: start: 20181026, end: 20181029

REACTIONS (4)
  - Melaena [None]
  - Haematochezia [None]
  - Gastric ulcer [None]
  - Vomiting [None]

NARRATIVE: CASE EVENT DATE: 20181029
